FAERS Safety Report 7104682-5 (Version None)
Quarter: 2010Q4

REPORT INFORMATION
  Report Type: 
  Country: None (occurrence: None)
  Receive Date: 20101116
  Receipt Date: 20101105
  Transmission Date: 20110411
  Serious: Yes (Hospitalization, Disabling)
  Sender: FDA-Public Use
  Company Number: CH-BAYER-201043941GPV

PATIENT
  Age: 20 Year
  Sex: Female
  Weight: 50 kg

DRUGS (2)
  1. MIRENA [Suspect]
     Indication: CONTRACEPTION
     Route: 015
     Dates: start: 20020101
  2. MIRENA [Suspect]
     Route: 015
     Dates: start: 20080501

REACTIONS (4)
  - BREAST ABSCESS [None]
  - BREAST DISCHARGE INFECTED [None]
  - BREAST PAIN [None]
  - GALACTORRHOEA [None]
